FAERS Safety Report 12584318 (Version 1)
Quarter: 2016Q3

REPORT INFORMATION
  Report Type: Spontaneous
  Country: GB (occurrence: GB)
  Receive Date: 20160722
  Receipt Date: 20160722
  Transmission Date: 20161109
  Serious: Yes (Other)
  Sender: FDA-Public Use
  Company Number: GB-IMPAX LABORATORIES, INC-2016-IPXL-00768

PATIENT
  Age: 66 Year
  Sex: Male

DRUGS (2)
  1. ADRENACLICK [Suspect]
     Active Substance: EPINEPHRINE
     Indication: OBSTRUCTIVE AIRWAYS DISORDER
     Dosage: TWICE
     Route: 065
  2. DEXAMETHASONE. [Concomitant]
     Active Substance: DEXAMETHASONE
     Indication: OBSTRUCTIVE AIRWAYS DISORDER
     Dosage: TWICE
     Route: 042

REACTIONS (1)
  - Stress cardiomyopathy [Unknown]
